FAERS Safety Report 10387587 (Version 1)
Quarter: 2014Q3

REPORT INFORMATION
  Report Type: Spontaneous
  Country: US (occurrence: US)
  Receive Date: 20140815
  Receipt Date: 20140815
  Transmission Date: 20150326
  Serious: Yes (Hospitalization)
  Sender: FDA-Public Use
  Company Number: US-BAYER-2014-119271

PATIENT
  Age: 64 Year
  Sex: Male
  Weight: 102.4 kg

DRUGS (6)
  1. BAYER GENUINE ASPIRIN [Suspect]
     Active Substance: ASPIRIN
     Route: 048
  2. ONE-A-DAY MENS VITACRAVES GUMMIES [Concomitant]
  3. FISH OIL [Concomitant]
     Active Substance: FISH OIL
  4. ALKA-SELTZER ORIGINAL [Suspect]
     Active Substance: ANHYDROUS CITRIC ACID\ASPIRIN\SODIUM BICARBONATE
     Dosage: 2 DF, ONCE
     Route: 048
     Dates: start: 2008, end: 2008
  5. ALEVE [Suspect]
     Active Substance: NAPROXEN SODIUM
     Indication: ARTHRALGIA
     Dosage: 2 DF, ONCE
     Route: 048
     Dates: start: 201407, end: 201407
  6. VITAMIN D3 [Concomitant]
     Active Substance: CHOLECALCIFEROL

REACTIONS (3)
  - Drug hypersensitivity [Not Recovered/Not Resolved]
  - Swelling face [Recovered/Resolved]
  - Swelling face [Recovered/Resolved]

NARRATIVE: CASE EVENT DATE: 2008
